FAERS Safety Report 16752264 (Version 2)
Quarter: 2020Q4

REPORT INFORMATION
  Report Type: Report from Study
  Country: CA (occurrence: CA)
  Receive Date: 20190828
  Receipt Date: 20201117
  Transmission Date: 20210113
  Serious: Yes (Other)
  Sender: FDA-Public Use
  Company Number: CA-GLAXOSMITHKLINE-CA2019GSK057411

PATIENT
  Age: 38 Year
  Sex: Male

DRUGS (12)
  1. RUPALL [Suspect]
     Active Substance: RUPATADINE FUMARATE
     Indication: PRODUCT USED FOR UNKNOWN INDICATION
     Dosage: 10 MG, QD
  2. PANTOLOC [Suspect]
     Active Substance: PANTOPRAZOLE SODIUM
     Indication: PRODUCT USED FOR UNKNOWN INDICATION
     Dosage: 40 MG, QD
  3. SPIRIVA RESPIMAT [Suspect]
     Active Substance: TIOTROPIUM BROMIDE
     Indication: PRODUCT USED FOR UNKNOWN INDICATION
     Dosage: 2 PUFF(S), QD (MORNING)
  4. AVAMYS [Suspect]
     Active Substance: FLUTICASONE FUROATE
     Indication: PRODUCT USED FOR UNKNOWN INDICATION
     Dosage: 2 DF, BID(VAPORIZATION)
  5. REACTINE (CETIRIZINE HYDROCHLORIDE) [Suspect]
     Active Substance: CETIRIZINE HYDROCHLORIDE
     Indication: PRODUCT USED FOR UNKNOWN INDICATION
     Dosage: 20 MG, QD
  6. SINGULAIR [Suspect]
     Active Substance: MONTELUKAST SODIUM
     Indication: PRODUCT USED FOR UNKNOWN INDICATION
     Dosage: UNK
  7. ASMANEX [Suspect]
     Active Substance: MOMETASONE FUROATE
     Indication: PRODUCT USED FOR UNKNOWN INDICATION
     Dosage: 2 PUFF(S), BID (MORNING, 400MCG)
  8. PREDNISONE. [Concomitant]
     Active Substance: PREDNISONE
     Indication: NASAL POLYPS
     Dosage: UNK
  9. VENTOLIN [Suspect]
     Active Substance: ALBUTEROL SULFATE
     Indication: PRODUCT USED FOR UNKNOWN INDICATION
     Dosage: UNK,LESS THAN ONCE A WEEK
  10. NUCALA [Suspect]
     Active Substance: MEPOLIZUMAB
     Indication: ASTHMA
     Dosage: 100 MG, Z
  11. MEPOLIZUMAB [Suspect]
     Active Substance: MEPOLIZUMAB
     Indication: ASTHMA
     Dosage: 100 MG, Z (MONTHLY)
     Route: 042
     Dates: start: 20160906
  12. BREO ELLIPTA [Suspect]
     Active Substance: FLUTICASONE FUROATE\VILANTEROL TRIFENATATE
     Indication: PRODUCT USED FOR UNKNOWN INDICATION
     Dosage: 1 PUFF(S), QD

REACTIONS (17)
  - Loss of consciousness [Unknown]
  - Nasal polyps [Unknown]
  - Conjunctivitis [Unknown]
  - Obstructive airways disorder [Unknown]
  - Nasal oedema [Unknown]
  - Asthma [Unknown]
  - Rhinitis [Unknown]
  - Dyspnoea exertional [Unknown]
  - Weight decreased [Unknown]
  - Bronchial obstruction [Unknown]
  - Nasal congestion [Unknown]
  - Fatigue [Unknown]
  - Arthropathy [Unknown]
  - Rhinorrhoea [Unknown]
  - Cardiac murmur [Unknown]
  - Sinusitis [Unknown]
  - Feeling cold [Unknown]

NARRATIVE: CASE EVENT DATE: 201903
